FAERS Safety Report 19739871 (Version 1)
Quarter: 2021Q3

REPORT INFORMATION
  Report Type: Spontaneous
  Country: IN (occurrence: IN)
  Receive Date: 20210823
  Receipt Date: 20210823
  Transmission Date: 20211014
  Serious: Yes (Other)
  Sender: FDA-Public Use
  Company Number: IN-AMICI-2021AMILIT00003

PATIENT
  Age: 26 Year
  Sex: Male

DRUGS (1)
  1. DICLOFENAC POTASSIUM. [Suspect]
     Active Substance: DICLOFENAC POTASSIUM
     Indication: LIGAMENT SPRAIN
     Route: 030

REACTIONS (4)
  - Injection site pain [Unknown]
  - Embolia cutis medicamentosa [Unknown]
  - Skin haemorrhage [Unknown]
  - Skin discolouration [Unknown]
